FAERS Safety Report 8994359 (Version 2)
Quarter: 2013Q2

REPORT INFORMATION
  Report Type: Spontaneous
  Country: US (occurrence: US)
  Receive Date: 20130102
  Receipt Date: 20130404
  Transmission Date: 20140414
  Serious: Yes (Other)
  Sender: FDA-Public Use
  Company Number: US-AMGEN-USASP2012080462

PATIENT
  Sex: Female

DRUGS (9)
  1. ENBREL [Suspect]
     Indication: RHEUMATOID ARTHRITIS
     Dosage: 50 UNK, QWK
     Route: 058
     Dates: end: 201212
  2. AZULFIDINE [Concomitant]
     Indication: RHEUMATOID ARTHRITIS
     Dosage: 1000 MG, BID
     Route: 048
  3. PLAQUENIL                          /00072602/ [Concomitant]
     Indication: RHEUMATOID ARTHRITIS
     Dosage: 200 MG, BID
     Route: 048
  4. VICODIN [Concomitant]
     Dosage: UNK
  5. METOPROLOL [Concomitant]
     Dosage: UNK
  6. COZAAR [Concomitant]
     Dosage: UNK
  7. NEXIUM                             /01479302/ [Concomitant]
     Dosage: UNK
  8. CO Q10 [Concomitant]
     Dosage: UNK
  9. DYAZIDE [Concomitant]

REACTIONS (1)
  - Malignant melanoma in situ [Unknown]
